FAERS Safety Report 8534939 (Version 3)
Quarter: 2017Q1

REPORT INFORMATION
  Report Type: Spontaneous
  Country: US (occurrence: US)
  Receive Date: 20120427
  Receipt Date: 20170216
  Transmission Date: 20170429
  Serious: Yes (Hospitalization, Other)
  Sender: FDA-Public Use
  Company Number: US-ASTRAZENECA-2012SE26046

PATIENT
  Age: 73 Year
  Sex: Female
  Weight: 68 kg

DRUGS (13)
  1. SYMBICORT [Suspect]
     Active Substance: BUDESONIDE\FORMOTEROL FUMARATE DIHYDRATE
     Indication: ASTHMA
     Dosage: 160/4.5MCG 2 PUFFS BID
     Route: 055
     Dates: start: 2010
  2. VITAMIN A [Concomitant]
     Active Substance: VITAMIN A
  3. VITAMIN E [Concomitant]
     Active Substance: .ALPHA.-TOCOPHEROL
     Dosage: DAILY
  4. CALCIUM [Concomitant]
     Active Substance: CALCIUM
     Dosage: DAILY
  5. MAGNESIUM [Concomitant]
     Active Substance: MAGNESIUM
     Dosage: DAILY
  6. VITAMIN K [Concomitant]
     Active Substance: PHYTONADIONE
     Dosage: DAILY
  7. VITAMIN B6 [Concomitant]
     Active Substance: PYRIDOXINE HYDROCHLORIDE
     Dosage: DAILY
  8. SYMBICORT [Suspect]
     Active Substance: BUDESONIDE\FORMOTEROL FUMARATE DIHYDRATE
     Indication: ASTHMA
     Dosage: 80/4.5MCG 1 PUFF DAILY
     Route: 055
  9. MIKLTHISTLE [Concomitant]
     Dosage: DAILY
  10. VITAMIN C [Concomitant]
     Active Substance: ASCORBIC ACID
     Dosage: DAILY
  11. VITAMIN B12 [Concomitant]
     Active Substance: CYANOCOBALAMIN
     Dosage: DAILY
  12. SYMBICORT [Suspect]
     Active Substance: BUDESONIDE\FORMOTEROL FUMARATE DIHYDRATE
     Indication: ASTHMA
     Dosage: 80/4.5MCG DAILY
     Route: 055
  13. SELINIUM [Concomitant]
     Dosage: DAILY

REACTIONS (26)
  - Post procedural haemorrhage [Unknown]
  - Wheezing [Unknown]
  - Insomnia [Unknown]
  - Syncope [Recovering/Resolving]
  - Cholelithiasis [Unknown]
  - Gait disturbance [Not Recovered/Not Resolved]
  - Back pain [Not Recovered/Not Resolved]
  - Drug effect incomplete [Unknown]
  - Post procedural infection [Unknown]
  - Eating disorder [Unknown]
  - Irritability [Unknown]
  - Cataract [Unknown]
  - Nervousness [Unknown]
  - Chest pain [Unknown]
  - Pain in extremity [Recovered/Resolved]
  - Osteoporosis [Unknown]
  - Tendon discomfort [Unknown]
  - Body height decreased [Unknown]
  - Candida infection [Not Recovered/Not Resolved]
  - Urinary tract infection bacterial [Unknown]
  - Asthma [Unknown]
  - Weight decreased [Unknown]
  - Glaucoma [Unknown]
  - Limb discomfort [Not Recovered/Not Resolved]
  - Decreased appetite [Unknown]
  - Intentional product misuse [Not Recovered/Not Resolved]

NARRATIVE: CASE EVENT DATE: 2012
